FAERS Safety Report 5495077-9 (Version None)
Quarter: 2007Q4

REPORT INFORMATION
  Report Type: 
  Country: None (occurrence: None)
  Receive Date: 20071015
  Receipt Date: 20070221
  Transmission Date: 20080405
  Serious: Yes (Other)
  Sender: FDA-Public Use
  Company Number: S07-USA-00821-01

PATIENT
  Age: 45 Year
  Sex: Male

DRUGS (3)
  1. LEXAPRO [Suspect]
     Dates: start: 20061101, end: 20070206
  2. BUPROPION HCL [Suspect]
     Indication: GENERALISED ANXIETY DISORDER
     Dosage: 150 MG BID
     Dates: start: 20070208
  3. ALCOHOL [Concomitant]

REACTIONS (3)
  - DISORIENTATION [None]
  - PANIC ATTACK [None]
  - SUICIDAL IDEATION [None]
